FAERS Safety Report 8794212 (Version 3)
Quarter: 2013Q1

REPORT INFORMATION
  Report Type: Report from Study
  Country: JP (occurrence: JP)
  Receive Date: 20120918
  Receipt Date: 20130314
  Transmission Date: 20140127
  Serious: Yes (Hospitalization, Other)
  Sender: FDA-Public Use
  Company Number: JP-009507513-2012SP012272

PATIENT
  Age: 65 Year
  Sex: Female
  Weight: 48 kg

DRUGS (8)
  1. PEGINTRON [Suspect]
     Indication: CHRONIC HEPATITIS C
     Dosage: 1.5 MICROGRAM PER KILOGRAM, QW
     Route: 058
     Dates: start: 20120117, end: 20120303
  2. REBETOL [Suspect]
     Indication: CHRONIC HEPATITIS C
     Dosage: 200 MG, BID
     Route: 048
     Dates: start: 20120117, end: 20120226
  3. REBETOL [Suspect]
     Dosage: 200 MG, QD
     Route: 048
     Dates: start: 20120227, end: 20120303
  4. TELAVIC [Suspect]
     Indication: CHRONIC HEPATITIS C
     Dosage: 750 MG, TID
     Route: 048
     Dates: start: 20120117, end: 20120303
  5. URSO [Concomitant]
     Indication: CHRONIC HEPATITIS C
     Dosage: 600 MG, QD, FORMULATION-POR
     Route: 048
  6. OLMETEC [Concomitant]
     Indication: HYPERTENSION
     Dosage: 10 MG, QD, FORMULATION-POR
     Route: 048
  7. LANSOPRAZOLE [Concomitant]
     Indication: GASTROOESOPHAGEAL REFLUX DISEASE
     Dosage: 15 MG, QD,FORMULATION-POR
     Route: 048
  8. LENDEM [Concomitant]
     Indication: INSOMNIA
     Dosage: 0.25 MG, QD, FORMULATION-POR
     Route: 048

REACTIONS (4)
  - Vomiting [Recovered/Resolved]
  - Haemoglobin decreased [Recovered/Resolved]
  - Decreased appetite [Recovered/Resolved]
  - Weight decreased [Recovering/Resolving]
